FAERS Safety Report 7079201-2 (Version None)
Quarter: 2010Q4

REPORT INFORMATION
  Report Type: 
  Country: None (occurrence: None)
  Receive Date: 20101102
  Receipt Date: 20101025
  Transmission Date: 20110411
  Serious: Yes (Life-Threatening, Hospitalization)
  Sender: FDA-Public Use
  Company Number: B0681020A

PATIENT
  Sex: Male

DRUGS (3)
  1. IMIGRANE [Suspect]
     Indication: CLUSTER HEADACHE
     Dosage: 50MG FOUR TIMES PER DAY
     Route: 048
     Dates: end: 20101004
  2. IMIGRANE [Suspect]
     Dosage: 10MG SINGLE DOSE
     Route: 045
     Dates: start: 20101004, end: 20101004
  3. IMIJECT [Suspect]
     Indication: CLUSTER HEADACHE
     Dosage: 6MG PER DAY
     Route: 058
     Dates: start: 20101004, end: 20101004

REACTIONS (7)
  - CHEST PAIN [None]
  - EFFUSION [None]
  - HYPOTENSION [None]
  - MALAISE [None]
  - OVERDOSE [None]
  - PARAESTHESIA [None]
  - PERIPORTAL OEDEMA [None]
